FAERS Safety Report 19488304 (Version 2)
Quarter: 2023Q2

REPORT INFORMATION
  Report Type: Report from Study
  Country: IT (occurrence: IT)
  Receive Date: 20210702
  Receipt Date: 20230525
  Transmission Date: 20230722
  Serious: Yes (Other)
  Sender: FDA-Public Use
  Company Number: IT-TAKEDA-2021TUS039935

PATIENT
  Age: 51 Year
  Sex: Male

DRUGS (12)
  1. TEDUGLUTIDE [Suspect]
     Active Substance: TEDUGLUTIDE
     Indication: Short-bowel syndrome
     Dosage: 5 MILLIGRAM, QD
     Route: 042
     Dates: start: 20190305, end: 20201112
  2. TEDUGLUTIDE [Suspect]
     Active Substance: TEDUGLUTIDE
     Indication: Short-bowel syndrome
     Dosage: 5 MILLIGRAM, QD
     Route: 042
     Dates: start: 20190305, end: 20201112
  3. TEDUGLUTIDE [Suspect]
     Active Substance: TEDUGLUTIDE
     Indication: Short-bowel syndrome
     Dosage: 5 MILLIGRAM, QD
     Route: 042
     Dates: start: 20190305, end: 20201112
  4. TEDUGLUTIDE [Suspect]
     Active Substance: TEDUGLUTIDE
     Indication: Short-bowel syndrome
     Dosage: 5 MILLIGRAM, QD
     Route: 042
     Dates: start: 20190305, end: 20201112
  5. ARIXTRA [Concomitant]
     Active Substance: FONDAPARINUX SODIUM
     Indication: Deep vein thrombosis
     Dosage: 1 DOSAGE FORM (AMP), QD
     Route: 058
     Dates: start: 20200428
  6. PLAVIX [Concomitant]
     Active Substance: CLOPIDOGREL BISULFATE
     Indication: Thrombosis
     Dosage: 1 DOSAGE FORM, QD
     Route: 048
     Dates: start: 2018
  7. OROTRE [Concomitant]
     Dosage: 1 DOSAGE FORM, BID
     Route: 048
     Dates: start: 2018
  8. MAGNESIUM CITRATE;POTASSIUM CITRATE [Concomitant]
     Indication: Nephrolithiasis
     Dosage: 1 DOSAGE FORM, QD
     Route: 048
     Dates: start: 2018
  9. ASCORBIC ACID\CYANOCOBALAMIN\FOLIC ACID\NIACINAMIDE [Concomitant]
     Active Substance: ASCORBIC ACID\CYANOCOBALAMIN\FOLIC ACID\NIACINAMIDE
     Indication: Hypovitaminosis
     Dosage: UNK
     Route: 030
     Dates: start: 20211011, end: 20220214
  10. ASCORBIC ACID\CYANOCOBALAMIN\FOLIC ACID\NIACINAMIDE [Concomitant]
     Active Substance: ASCORBIC ACID\CYANOCOBALAMIN\FOLIC ACID\NIACINAMIDE
     Dosage: UNK
     Route: 042
     Dates: start: 20220215
  11. LEUCOVORIN CALCIUM [Concomitant]
     Active Substance: LEUCOVORIN CALCIUM
     Indication: Folate deficiency
     Dosage: UNK
     Route: 042
     Dates: start: 20221130
  12. Niferex [Concomitant]
     Indication: Iron deficiency
     Dosage: 100 MILLIGRAM, QD
     Route: 048
     Dates: start: 20221130

REACTIONS (1)
  - Pelvic venous thrombosis [Recovered/Resolved]

NARRATIVE: CASE EVENT DATE: 20210416
